FAERS Safety Report 25536813 (Version 1)
Quarter: 2025Q3

REPORT INFORMATION
  Report Type: Spontaneous
  Country: EU (occurrence: EU)
  Receive Date: 20250710
  Receipt Date: 20250710
  Transmission Date: 20251020
  Serious: Yes (Hospitalization)
  Sender: MERCK SHARP & DOHME LLC
  Company Number: EU-Eisai-EC-2025-191622

PATIENT
  Age: 76 Year
  Sex: Male

DRUGS (2)
  1. PEMBROLIZUMAB [Suspect]
     Active Substance: PEMBROLIZUMAB
     Indication: Pancreatic carcinoma
     Route: 041
     Dates: start: 202410
  2. LENVATINIB [Suspect]
     Active Substance: LENVATINIB
     Indication: Pancreatic carcinoma
     Dosage: 20 MG, QD
     Route: 048
     Dates: start: 20250422, end: 2025

REACTIONS (2)
  - Epistaxis [Recovered/Resolved]
  - General physical health deterioration [Recovering/Resolving]

NARRATIVE: CASE EVENT DATE: 20250401
